FAERS Safety Report 5106418-6 (Version None)
Quarter: 2006Q3

REPORT INFORMATION
  Report Type: 
  Country: None (occurrence: None)
  Receive Date: 20060918
  Receipt Date: 20060908
  Transmission Date: 20061208
  Serious: Yes (Other)
  Sender: FDA-Public Use
  Company Number: PHBS2006JP13845

PATIENT

DRUGS (1)
  1. PARLODEL [Suspect]
     Indication: PARKINSON'S DISEASE
     Route: 048
     Dates: end: 20060101

REACTIONS (2)
  - CHEST X-RAY ABNORMAL [None]
  - INTERSTITIAL LUNG DISEASE [None]
